FAERS Safety Report 9524811 (Version 4)
Quarter: 2013Q4

REPORT INFORMATION
  Report Type: Spontaneous
  Country: US (occurrence: US)
  Receive Date: 20130916
  Receipt Date: 20131112
  Transmission Date: 20140711
  Serious: Yes (Other)
  Sender: FDA-Public Use
  Company Number: US-PFIZER INC-2013243913

PATIENT
  Age: 78 Year
  Sex: Female
  Weight: 65.31 kg

DRUGS (5)
  1. LATANOPROST [Suspect]
     Indication: MACULAR DEGENERATION
     Dosage: 1 GTT, (OU QHS) 1X/DAY
     Route: 047
     Dates: start: 201208
  2. LATANOPROST [Suspect]
     Indication: GLAUCOMA
     Dosage: 1 GTT, (OU QHS) 1X/DAY
     Route: 047
     Dates: start: 201208
  3. SIMVASTATIN [Concomitant]
     Indication: BLOOD CHOLESTEROL INCREASED
     Dosage: UNK
  4. THEOPHYLLINE [Concomitant]
     Indication: ASTHMA
     Dosage: UNK
  5. TIMOLOL [Concomitant]
     Dosage: 1 GTT, OU 1X/DAY
     Route: 047

REACTIONS (2)
  - Heterochromia iridis [Not Recovered/Not Resolved]
  - Pupils unequal [Not Recovered/Not Resolved]
